FAERS Safety Report 9653670 (Version 2)
Quarter: 2013Q4

REPORT INFORMATION
  Report Type: Spontaneous
  Country: US (occurrence: US)
  Receive Date: 20131029
  Receipt Date: 20131202
  Transmission Date: 20140711
  Serious: No
  Sender: FDA-Public Use
  Company Number: US-BIOGENIDEC-2013BI080070

PATIENT
  Sex: Female

DRUGS (7)
  1. TECFIDERA [Suspect]
     Indication: MULTIPLE SCLEROSIS
     Route: 048
     Dates: start: 20130729
  2. VITAMIN D-3 [Concomitant]
  3. CALCIUM + D [Concomitant]
  4. COPAXONE [Concomitant]
  5. LISINOPRIL [Concomitant]
  6. OSTEO BI-FLEX [Concomitant]
  7. PROBIOTIC [Concomitant]

REACTIONS (4)
  - Paraesthesia oral [Unknown]
  - Hunger [Unknown]
  - Flushing [Unknown]
  - Burning sensation [Unknown]
